FAERS Safety Report 8492330 (Version 4)
Quarter: 2012Q4

REPORT INFORMATION
  Report Type: Report from Study
  Country: GB (occurrence: GB)
  Receive Date: 20120403
  Receipt Date: 20121101
  Transmission Date: 20130627
  Serious: Yes (Hospitalization)
  Sender: FDA-Public Use
  Company Number: GB-GLAXOSMITHKLINE-B0792997A

PATIENT
  Age: 46 Year
  Sex: Male

DRUGS (8)
  1. PAZOPANIB [Suspect]
     Indication: RENAL CELL CARCINOMA
     Dosage: 800MG Per day
     Route: 048
     Dates: start: 20120203
  2. RAMIPRIL [Concomitant]
  3. MST [Concomitant]
  4. FELODIPINE [Concomitant]
  5. ORAMORPH [Concomitant]
  6. INDAPAMIDE [Concomitant]
  7. MOVICOL [Concomitant]
  8. NIQUITIN [Concomitant]

REACTIONS (2)
  - Hyponatraemia [Recovered/Resolved]
  - Hypercalcaemia [Recovered/Resolved]
